FAERS Safety Report 7008098-1 (Version None)
Quarter: 2010Q3

REPORT INFORMATION
  Report Type: 
  Country: None (occurrence: None)
  Receive Date: 20100922
  Receipt Date: 20100909
  Transmission Date: 20110219
  Serious: Yes (Hospitalization)
  Sender: FDA-Public Use
  Company Number: BR-US-EMD SERONO, INC.-7017767

PATIENT
  Sex: Female

DRUGS (6)
  1. REBIF [Suspect]
     Indication: RELAPSING-REMITTING MULTIPLE SCLEROSIS
     Route: 058
     Dates: start: 20100601
  2. REBIF [Suspect]
     Dates: start: 20010701
  3. VASOPRIL [Concomitant]
  4. HIDRION [Concomitant]
  5. PROPRANOLOL [Concomitant]
  6. OMEPRA [Concomitant]

REACTIONS (3)
  - FATIGUE [None]
  - PARAESTHESIA [None]
  - VISUAL ACUITY REDUCED [None]
